FAERS Safety Report 4272482-X (Version None)
Quarter: 2004Q1

REPORT INFORMATION
  Report Type: 
  Country: None (occurrence: None)
  Receive Date: 20040115
  Receipt Date: 20040105
  Transmission Date: 20041129
  Serious: Yes (Death)
  Sender: FDA-Public Use
  Company Number: WAES 0401GBR00013

PATIENT
  Age: 2 Year
  Sex: Male
  Weight: 13 kg

DRUGS (3)
  1. ACETAMINOPHEN [Concomitant]
     Route: 048
     Dates: start: 20031114, end: 20031115
  2. DECADRON [Suspect]
     Route: 048
     Dates: start: 20031113, end: 20031114
  3. IBUPROFEN [Concomitant]
     Route: 048
     Dates: start: 20031114, end: 20031115

REACTIONS (2)
  - INFLUENZA [None]
  - PNEUMOCOCCAL SEPSIS [None]
